FAERS Safety Report 5725553-2 (Version None)
Quarter: 2008Q2

REPORT INFORMATION
  Report Type: 
  Country: None (occurrence: None)
  Receive Date: 20080501
  Receipt Date: 20080422
  Transmission Date: 20081010
  Serious: Yes (Other)
  Sender: FDA-Public Use
  Company Number: PHHY2008SI06303

PATIENT
  Age: 48 Year
  Sex: Female

DRUGS (3)
  1. EMSELEX MODIFIED RELEASE [Suspect]
     Indication: HYPERTONIC BLADDER
     Dosage: 7.5 MG, QD
     Dates: start: 20060509
  2. EMSELEX MODIFIED RELEASE [Suspect]
     Dosage: UNK, QD
  3. EMSELEX MODIFIED RELEASE [Suspect]
     Dosage: 7.5 MG/DAY
     Dates: start: 20060509

REACTIONS (2)
  - DRY MOUTH [None]
  - TRANSIENT ISCHAEMIC ATTACK [None]
